FAERS Safety Report 25327498 (Version 2)
Quarter: 2025Q2

REPORT INFORMATION
  Report Type: Spontaneous
  Country: US (occurrence: US)
  Receive Date: 20250517
  Receipt Date: 20250619
  Transmission Date: 20250716
  Serious: No
  Sender: SANOFI AVENTIS
  Company Number: US-SA-2025SA140807

PATIENT
  Age: 28 Year
  Sex: Male
  Weight: 60 kg

DRUGS (5)
  1. DUPIXENT [Suspect]
     Active Substance: DUPILUMAB
     Indication: Eosinophilic oesophagitis
     Dosage: 300 MG, QW
     Route: 058
     Dates: start: 20250503
  2. DUPIXENT [Suspect]
     Active Substance: DUPILUMAB
     Indication: Illness
  3. VITAMIN D3 [Concomitant]
     Active Substance: CHOLECALCIFEROL
  4. VITAMINS NOS [Concomitant]
     Active Substance: VITAMINS
  5. OMEPRAZOLE [Concomitant]
     Active Substance: OMEPRAZOLE

REACTIONS (6)
  - Injection site swelling [Recovering/Resolving]
  - Injection site pain [Unknown]
  - Hypoaesthesia [Recovered/Resolved]
  - Muscular weakness [Recovered/Resolved]
  - Injection site erythema [Unknown]
  - Injection site discolouration [Unknown]

NARRATIVE: CASE EVENT DATE: 20250101
